FAERS Safety Report 16170462 (Version 2)
Quarter: 2019Q2

REPORT INFORMATION
  Report Type: Spontaneous
  Country: US (occurrence: US)
  Receive Date: 20190408
  Receipt Date: 20190429
  Transmission Date: 20190711
  Serious: No
  Sender: FDA-Public Use
  Company Number: US-PFIZER INC-2019149020

PATIENT

DRUGS (3)
  1. DOCEFREZ [Suspect]
     Active Substance: DOCETAXEL ANHYDROUS
     Dosage: UNK
     Dates: start: 201604, end: 201607
  2. DOCETAXEL. [Suspect]
     Active Substance: DOCETAXEL
  3. TAXOTERE [Suspect]
     Active Substance: DOCETAXEL

REACTIONS (1)
  - Alopecia [Unknown]
